FAERS Safety Report 24865720 (Version 1)
Quarter: 2025Q1

REPORT INFORMATION
  Report Type: Spontaneous
  Country: US (occurrence: US)
  Receive Date: 20250121
  Receipt Date: 20250121
  Transmission Date: 20250409
  Serious: No
  Sender: CURRAX PHARMACEUTICALS
  Company Number: US-CURRAX PHARMACEUTICALS LLC-US-2023CUR003232

PATIENT

DRUGS (1)
  1. CONTRAVE [Suspect]
     Active Substance: BUPROPION HYDROCHLORIDE\NALTREXONE HYDROCHLORIDE
     Indication: Obesity
     Dosage: STRENGTH 8/90 MG, 2 PILLS A DAY
     Route: 065
     Dates: start: 2023, end: 2023

REACTIONS (11)
  - Throat tightness [Unknown]
  - Myalgia [Unknown]
  - Dyspnoea [Unknown]
  - Panic attack [Unknown]
  - Dry mouth [Unknown]
  - Dizziness [Unknown]
  - Nausea [Unknown]
  - Diarrhoea [Unknown]
  - Anxiety [Unknown]
  - Hypertension [Unknown]
  - Drug titration error [Unknown]

NARRATIVE: CASE EVENT DATE: 20230101
